FAERS Safety Report 9983802 (Version 1)
Quarter: 2014Q1

REPORT INFORMATION
  Report Type: Spontaneous
  Country: US (occurrence: US)
  Receive Date: 20140307
  Receipt Date: 20140307
  Transmission Date: 20141002
  Serious: Yes (Hospitalization, Other)
  Sender: FDA-Public Use
  Company Number: US-BAXTER-2014BAX010726

PATIENT
  Sex: Female

DRUGS (4)
  1. DIANEAL LOW CALCIUM [Suspect]
     Indication: RENAL FAILURE CHRONIC
     Route: 033
     Dates: start: 20140101
  2. DIANEAL LOW CALCIUM [Suspect]
     Route: 033
     Dates: start: 20140101
  3. DIANEAL LOW CALCIUM [Suspect]
     Indication: RENAL FAILURE CHRONIC
     Route: 033
     Dates: start: 20140101
  4. DIANEAL LOW CALCIUM [Suspect]
     Route: 033
     Dates: start: 20140101

REACTIONS (3)
  - Gastrooesophageal reflux disease [Recovered/Resolved]
  - Syncope [Recovered/Resolved]
  - Pancreatitis [Recovering/Resolving]
